FAERS Safety Report 21862109 (Version 3)
Quarter: 2023Q1

REPORT INFORMATION
  Report Type: Spontaneous
  Country: US (occurrence: None)
  Receive Date: 20230113
  Receipt Date: 20230203
  Transmission Date: 20230417
  Serious: Yes (Life-Threatening, Hospitalization, Other)
  Sender: FDA-Public Use
  Company Number: US-Emmaus Medical, Inc.-EMM202301-000010

PATIENT
  Sex: Male
  Weight: 63.5 kg

DRUGS (1)
  1. ENDARI [Suspect]
     Active Substance: GLUTAMINE
     Indication: Sickle cell anaemia
     Dosage: 10 GRAM (2 PACKETS)
     Route: 048
     Dates: start: 20220909, end: 20221012

REACTIONS (7)
  - Brain oedema [Recovered/Resolved]
  - Bone infarction [Recovered/Resolved]
  - Feeding disorder [Recovered/Resolved]
  - Gait inability [Recovered/Resolved]
  - Insomnia [Recovered/Resolved]
  - Headache [Recovered/Resolved]
  - Sickle cell anaemia with crisis [Recovered/Resolved]
